FAERS Safety Report 6048419-X (Version None)
Quarter: 2009Q1

REPORT INFORMATION
  Report Type: 
  Country: None (occurrence: None)
  Receive Date: 20090123
  Receipt Date: 20090116
  Transmission Date: 20090719
  Serious: Yes (Death, Hospitalization)
  Sender: FDA-Public Use
  Company Number: A0764567A

PATIENT
  Age: 56 Year
  Sex: Male
  Weight: 181.8 kg

DRUGS (1)
  1. AVANDIA [Suspect]
     Route: 048
     Dates: start: 19950101, end: 20031108

REACTIONS (4)
  - CARDIAC FAILURE CONGESTIVE [None]
  - DEATH [None]
  - HEART RATE INCREASED [None]
  - SWELLING [None]
